FAERS Safety Report 22051501 (Version 1)
Quarter: 2023Q1

REPORT INFORMATION
  Report Type: Spontaneous
  Country: CN (occurrence: CN)
  Receive Date: 20230301
  Receipt Date: 20230301
  Transmission Date: 20230418
  Serious: Yes (Congenital Anomaly)
  Sender: FDA-Public Use
  Company Number: CN-STRIDES ARCOLAB LIMITED-2023SP003020

PATIENT

DRUGS (2)
  1. ENTECAVIR [Suspect]
     Active Substance: ENTECAVIR
     Indication: Product used for unknown indication
     Dosage: UNK (THE PATIENT MOTHER RECEIVED ENTECAVIR DURING PREGNANCY)
     Route: 064
  2. TENOFOVIR DISOPROXIL FUMARATE [Suspect]
     Active Substance: TENOFOVIR DISOPROXIL FUMARATE
     Indication: Product used for unknown indication
     Dosage: UNK (THE PATIENT MOTHER RECEIVED TENOFOVIR DURING PREGNANCY)
     Route: 064

REACTIONS (2)
  - Anal atresia [Unknown]
  - Foetal exposure during pregnancy [Unknown]
